FAERS Safety Report 26137619 (Version 2)
Quarter: 2025Q4

REPORT INFORMATION
  Report Type: Report from Study
  Country: EU (occurrence: EU)
  Receive Date: 20251209
  Receipt Date: 20251226
  Transmission Date: 20260118
  Serious: Yes (Other)
  Sender: JOHNSON AND JOHNSON
  Company Number: EU-JNJFOC-20251203347

PATIENT
  Age: 70 Year
  Sex: Male

DRUGS (2)
  1. TECLISTAMAB [Suspect]
     Active Substance: TECLISTAMAB
     Indication: Plasma cell myeloma refractory
  2. TECLISTAMAB [Suspect]
     Active Substance: TECLISTAMAB

REACTIONS (5)
  - Cytokine release syndrome [Recovered/Resolved]
  - Tumour lysis syndrome [Recovered/Resolved]
  - Hypogammaglobulinaemia [Recovered/Resolved]
  - Gastroenteritis [Recovered/Resolved]
  - Arthralgia [Recovering/Resolving]

NARRATIVE: CASE EVENT DATE: 20241027
